FAERS Safety Report 18095270 (Version 1)
Quarter: 2020Q3

REPORT INFORMATION
  Report Type: Report from Study
  Country: US (occurrence: US)
  Receive Date: 20200730
  Receipt Date: 20200730
  Transmission Date: 20201103
  Serious: Yes (Hospitalization)
  Sender: FDA-Public Use
  Company Number: US-MYLANLABS-2020M1068323

PATIENT

DRUGS (3)
  1. DEXMEDETOMIDINE. [Suspect]
     Active Substance: DEXMEDETOMIDINE
     Indication: SEDATIVE THERAPY
     Dosage: DEXMEDETOMIDINE DOSE RATE WAS DECREASED BY 50%...
  2. CLONIDINE. [Suspect]
     Active Substance: CLONIDINE
     Dosage: 4 MICROGRAM/KILOGRAM, Q6H DOSE INCREASED
  3. CLONIDINE. [Suspect]
     Active Substance: CLONIDINE
     Indication: PROPHYLAXIS
     Dosage: 2 MICROGRAM/KILOGRAM, Q6H

REACTIONS (2)
  - Off label use [Unknown]
  - Withdrawal syndrome [Recovering/Resolving]
